FAERS Safety Report 6924882-4 (Version None)
Quarter: 2010Q3

REPORT INFORMATION
  Report Type: 
  Country: None (occurrence: None)
  Receive Date: 20100816
  Receipt Date: 20100804
  Transmission Date: 20110219
  Serious: Yes (Other)
  Sender: FDA-Public Use
  Company Number: US-JNJFOC-20100501632

PATIENT
  Sex: Female
  Weight: 8.66 kg

DRUGS (6)
  1. CONCENTRATED TYLENOL INFANT DROPS [Suspect]
     Indication: PAIN
  2. CONCENTRATED TYLENOL INFANT DROPS [Suspect]
     Indication: PYREXIA
  3. SINGULAIR [Concomitant]
     Indication: HYPERSENSITIVITY
     Route: 055
  4. ZANTAC [Concomitant]
     Indication: GASTROOESOPHAGEAL REFLUX DISEASE
  5. ROCEPHIN [Concomitant]
     Indication: SINUSITIS
     Route: 050
  6. ALBUTEROL [Concomitant]
     Indication: PRODUCT USED FOR UNKNOWN INDICATION
     Route: 055

REACTIONS (5)
  - DEHYDRATION [None]
  - DYSPNOEA [None]
  - GASTROENTERITIS [None]
  - MIDDLE EAR EFFUSION [None]
  - PRODUCT QUALITY ISSUE [None]
